FAERS Safety Report 4979547-5 (Version None)
Quarter: 2006Q2

REPORT INFORMATION
  Report Type: 
  Country: None (occurrence: None)
  Receive Date: 20060421
  Receipt Date: 20060410
  Transmission Date: 20061013
  Serious: Yes (Hospitalization)
  Sender: FDA-Public Use
  Company Number: US-ROCHE-444043

PATIENT
  Age: 68 Year
  Sex: Male

DRUGS (1)
  1. XELODA [Suspect]
     Route: 048
     Dates: start: 20060406

REACTIONS (2)
  - CONVULSION [None]
  - POSTOPERATIVE THROMBOSIS [None]
